FAERS Safety Report 22270595 (Version 1)
Quarter: 2023Q2

REPORT INFORMATION
  Report Type: Spontaneous
  Country: US (occurrence: None)
  Receive Date: 20230430
  Receipt Date: 20230430
  Transmission Date: 20230721
  Serious: Yes (Disabling)
  Sender: FDA-Public Use
  Company Number: None

PATIENT
  Age: 34 Year
  Sex: Female
  Weight: 72 kg

DRUGS (1)
  1. VENLAFAXINE HYDROCHLORIDE ER [Suspect]
     Active Substance: VENLAFAXINE HYDROCHLORIDE
     Dosage: FREQUENCY : DAILY;?
     Route: 048

REACTIONS (13)
  - Withdrawal syndrome [None]
  - Vertigo [None]
  - Dizziness [None]
  - Nausea [None]
  - Vomiting [None]
  - Hyperhidrosis [None]
  - Blood pressure increased [None]
  - Malaise [None]
  - Anxiety [None]
  - Mood swings [None]
  - Impaired work ability [None]
  - Product communication issue [None]
  - Physical product label issue [None]

NARRATIVE: CASE EVENT DATE: 20230423
